FAERS Safety Report 10062684 (Version 1)
Quarter: 2014Q2

REPORT INFORMATION
  Report Type: Spontaneous
  Country: US (occurrence: US)
  Receive Date: 20140407
  Receipt Date: 20140407
  Transmission Date: 20141212
  Serious: Yes (Life-Threatening, Other)
  Sender: FDA-Public Use
  Company Number: US-ASTRAZENECA-2014SE23754

PATIENT
  Age: 51 Year
  Sex: Female
  Weight: 69.9 kg

DRUGS (7)
  1. SEROQUEL XR [Suspect]
     Indication: BIPOLAR DISORDER
     Dosage: TWO TIMES A DAY
     Route: 048
     Dates: start: 1998, end: 2007
  2. SEROQUEL XR [Suspect]
     Indication: DEPRESSION
     Dosage: TWO TIMES A DAY
     Route: 048
     Dates: start: 1998, end: 2007
  3. SEROQUEL XR [Suspect]
     Indication: BIPOLAR DISORDER
     Route: 048
     Dates: start: 2007
  4. SEROQUEL XR [Suspect]
     Indication: DEPRESSION
     Route: 048
     Dates: start: 2007
  5. ABILIFY [Suspect]
     Route: 065
     Dates: end: 2010
  6. LITHIUM [Concomitant]
     Dosage: UNKNOWN UNK
     Dates: end: 2010
  7. PROZAC [Concomitant]
     Dosage: UNKNOWN UNK
     Dates: end: 2010

REACTIONS (8)
  - Apparent death [Unknown]
  - Organ failure [Unknown]
  - Breast cancer female [Unknown]
  - Syncope [Unknown]
  - Depression [Unknown]
  - Mania [Unknown]
  - Feeling abnormal [Unknown]
  - Drug effect incomplete [Unknown]
